FAERS Safety Report 6942744-3 (Version None)
Quarter: 2010Q3

REPORT INFORMATION
  Report Type: 
  Country: None (occurrence: None)
  Receive Date: 20100823
  Receipt Date: 20100723
  Transmission Date: 20110219
  Serious: Yes (Other)
  Sender: FDA-Public Use
  Company Number: 1000015823

PATIENT
  Age: 77 Year
  Sex: Male

DRUGS (2)
  1. CELEXA [Suspect]
     Indication: ANXIETY
  2. CELEXA [Suspect]
     Indication: DEPRESSION

REACTIONS (4)
  - AKATHISIA [None]
  - BLEPHAROSPASM [None]
  - CHOREA [None]
  - TARDIVE DYSKINESIA [None]
